FAERS Safety Report 17826975 (Version 1)
Quarter: 2020Q2

REPORT INFORMATION
  Report Type: Spontaneous
  Country: IT (occurrence: IT)
  Receive Date: 20200526
  Receipt Date: 20200526
  Transmission Date: 20200714
  Serious: Yes (Other)
  Sender: FDA-Public Use
  Company Number: NVSC2020IT142936

PATIENT
  Age: 79 Year
  Sex: Male
  Weight: 72 kg

DRUGS (1)
  1. ENTRESTO [Suspect]
     Active Substance: SACUBITRIL\VALSARTAN
     Indication: MYOCARDIAL ISCHAEMIA
     Dosage: 24 MG, QD
     Route: 048
     Dates: start: 20200105, end: 20200110

REACTIONS (4)
  - Ocular icterus [Recovering/Resolving]
  - Hepatic failure [Recovering/Resolving]
  - Jaundice [Recovering/Resolving]
  - Hyperbilirubinaemia [Recovering/Resolving]

NARRATIVE: CASE EVENT DATE: 20200110
